FAERS Safety Report 24002488 (Version 1)
Quarter: 2024Q2

REPORT INFORMATION
  Report Type: Spontaneous
  Country: AT (occurrence: AT)
  Receive Date: 20240623
  Receipt Date: 20240623
  Transmission Date: 20240715
  Serious: Yes (Other)
  Sender: FDA-Public Use
  Company Number: AT-AMGEN-AUTSP2024119938

PATIENT
  Age: 69 Year
  Sex: Female

DRUGS (2)
  1. LUMAKRAS [Suspect]
     Active Substance: SOTORASIB
     Indication: Non-small cell lung cancer
     Dosage: 960 MILLIGRAM, QD
     Route: 065
     Dates: start: 20230503
  2. LUMAKRAS [Suspect]
     Active Substance: SOTORASIB
     Dosage: 600 MILLIGRAM, QD, DOSE REDUCTION
     Route: 065
     Dates: end: 202401

REACTIONS (4)
  - Non-small cell lung cancer [Unknown]
  - Pruritus [Unknown]
  - Diarrhoea [Unknown]
  - Transaminases increased [Unknown]

NARRATIVE: CASE EVENT DATE: 20240101
